FAERS Safety Report 7536364-X (Version None)
Quarter: 2011Q2

REPORT INFORMATION
  Report Type: 
  Country: None (occurrence: None)
  Receive Date: 20110609
  Receipt Date: 20110531
  Transmission Date: 20111010
  Serious: Yes (Other)
  Sender: FDA-Public Use
  Company Number: US-PFIZER INC-2008095696

PATIENT
  Sex: Female

DRUGS (8)
  1. ASPIRIN [Concomitant]
  2. METOPROLOL [Concomitant]
     Dosage: UNK
  3. LIPITOR [Suspect]
     Indication: CARDIAC DISORDER
     Dosage: 20 MG, 1X/DAY
     Route: 048
  4. PROTONIX [Suspect]
     Indication: GASTROOESOPHAGEAL REFLUX DISEASE
     Dosage: 40 MG, 1X/DAY
     Route: 048
  5. TRICOR [Concomitant]
     Dosage: UNK
  6. PLAVIX [Concomitant]
     Dosage: UNK
  7. PROCARDIA XL [Concomitant]
  8. CELEXA [Concomitant]
     Dosage: UNK

REACTIONS (6)
  - PALPITATIONS [None]
  - ASTHENIA [None]
  - HYPOACUSIS [None]
  - BLOOD POTASSIUM DECREASED [None]
  - BLOOD POTASSIUM INCREASED [None]
  - BLOOD TRIGLYCERIDES INCREASED [None]
